FAERS Safety Report 9712792 (Version 1)
Quarter: 2013Q4

REPORT INFORMATION
  Report Type: Spontaneous
  Country: BR (occurrence: BR)
  Receive Date: 20131126
  Receipt Date: 20131126
  Transmission Date: 20140711
  Serious: Yes (Other)
  Sender: FDA-Public Use
  Company Number: BR-BAYER-2013-141719

PATIENT
  Age: 27 Year
  Sex: Female

DRUGS (1)
  1. QLAIRA [Suspect]
     Route: 048

REACTIONS (3)
  - Menstruation delayed [Not Recovered/Not Resolved]
  - Gardnerella infection [Not Recovered/Not Resolved]
  - Metrorrhagia [Recovered/Resolved]
